FAERS Safety Report 7311929-9 (Version None)
Quarter: 2011Q1

REPORT INFORMATION
  Report Type: 
  Country: None (occurrence: None)
  Receive Date: 20110224
  Receipt Date: 20110215
  Transmission Date: 20110831
  Serious: Yes (Other)
  Sender: FDA-Public Use
  Company Number: PHHY2011CA13410

PATIENT
  Sex: Male

DRUGS (1)
  1. RIVASTIGMINE [Suspect]
     Dosage: UNK

REACTIONS (4)
  - AGITATION [None]
  - INCONTINENCE [None]
  - CONFUSIONAL STATE [None]
  - SOMNAMBULISM [None]
